FAERS Safety Report 7597904-8 (Version None)
Quarter: 2011Q3

REPORT INFORMATION
  Report Type: 
  Country: None (occurrence: None)
  Receive Date: 20110708
  Receipt Date: 20110627
  Transmission Date: 20111222
  Serious: Yes (Life-Threatening, Other)
  Sender: FDA-Public Use
  Company Number: US-ENDO PHARMACEUTICALS INC.-OPER20110122

PATIENT
  Sex: Male
  Weight: 92.616 kg

DRUGS (4)
  1. OPANA ER [Suspect]
     Indication: BACK PAIN
     Route: 048
     Dates: start: 20101119, end: 20110201
  2. ADDERALL 10 [Concomitant]
     Indication: ATTENTION DEFICIT/HYPERACTIVITY DISORDER
     Route: 048
     Dates: start: 20110110, end: 20110201
  3. OPANA ER [Suspect]
     Indication: DRUG ABUSE
     Dosage: 40 MG
     Dates: start: 20110201, end: 20110201
  4. OPANA [Concomitant]
     Indication: BACK PAIN
     Route: 048
     Dates: start: 20110131, end: 20110201

REACTIONS (5)
  - INCORRECT ROUTE OF DRUG ADMINISTRATION [None]
  - LOSS OF CONSCIOUSNESS [None]
  - DRUG ABUSE [None]
  - WRONG TECHNIQUE IN DRUG USAGE PROCESS [None]
  - OVERDOSE [None]
